FAERS Safety Report 6543727-8 (Version None)
Quarter: 2010Q1

REPORT INFORMATION
  Report Type: 
  Country: None (occurrence: None)
  Receive Date: 20100120
  Receipt Date: 20100111
  Transmission Date: 20100710
  Serious: Yes (Other)
  Sender: FDA-Public Use
  Company Number: SE-B.I. PHARMACEUTICALS,INC./RIDGEFIELD-2010-SW-00010SW

PATIENT
  Sex: Female

DRUGS (1)
  1. SIFROL TAB [Suspect]

REACTIONS (1)
  - DRUG TOXICITY [None]
